FAERS Safety Report 7915449-X (Version None)
Quarter: 2011Q4

REPORT INFORMATION
  Report Type: 
  Country: None (occurrence: None)
  Receive Date: 20111115
  Receipt Date: 20111020
  Transmission Date: 20120403
  Serious: Yes (Hospitalization)
  Sender: FDA-Public Use
  Company Number: HU-ROCHE-1010806

PATIENT
  Sex: Female
  Weight: 67 kg

DRUGS (2)
  1. AVASTIN [Suspect]
     Indication: BREAST CANCER
     Route: 042
     Dates: start: 20110221, end: 20110718
  2. PACLITAXEL [Suspect]
     Indication: BREAST CANCER
     Dates: start: 20110221, end: 20110718

REACTIONS (1)
  - NEPHROPATHY TOXIC [None]
